FAERS Safety Report 4740669-5 (Version None)
Quarter: 2005Q3

REPORT INFORMATION
  Report Type: 
  Country: None (occurrence: None)
  Receive Date: 20050801
  Receipt Date: 20050630
  Transmission Date: 20060218
  Serious: No
  Sender: FDA-Public Use
  Company Number: 2005PV000211

PATIENT
  Sex: 0

DRUGS (1)
  1. BYETTA [Suspect]
     Dosage: 5 UG; BID; SC
     Route: 058
     Dates: start: 20050601

REACTIONS (2)
  - ERUCTATION [None]
  - NAUSEA [None]
